FAERS Safety Report 12598029 (Version 1)
Quarter: 2016Q3

REPORT INFORMATION
  Report Type: Report from Study
  Country: MX (occurrence: MX)
  Receive Date: 20160727
  Receipt Date: 20160727
  Transmission Date: 20161109
  Serious: Yes (Other)
  Sender: FDA-Public Use
  Company Number: PHHY2016MX102019

PATIENT
  Sex: Male

DRUGS (1)
  1. ONBREZ BREEZHALER [Suspect]
     Active Substance: INDACATEROL
     Indication: PRODUCT USED FOR UNKNOWN INDICATION
     Dosage: 150 UG, UNK
     Route: 065

REACTIONS (1)
  - Varicose vein [Unknown]
